FAERS Safety Report 6510040-4 (Version None)
Quarter: 2009Q4

REPORT INFORMATION
  Report Type: 
  Country: None (occurrence: None)
  Receive Date: 20091222
  Receipt Date: 20091218
  Transmission Date: 20100525
  Serious: Yes (Hospitalization)
  Sender: FDA-Public Use
  Company Number: US-CUBIST-2009S1000534

PATIENT
  Age: 77 Year
  Sex: Male
  Weight: 155 kg

DRUGS (7)
  1. CUBICIN [Suspect]
     Indication: ARTHRITIS BACTERIAL
     Route: 042
  2. CUBICIN [Suspect]
     Indication: STAPHYLOCOCCAL INFECTION
     Route: 042
  3. CUBICIN [Suspect]
     Indication: OFF LABEL USE
     Route: 042
  4. DOXYCYCLINE [Concomitant]
     Indication: ARTHRITIS BACTERIAL
  5. VANCOMYCIN [Concomitant]
     Indication: ARTHRITIS BACTERIAL
  6. HMG COA REDUCTASE INHIBITORS [Concomitant]
     Indication: DRUG USE FOR UNKNOWN INDICATION
  7. AMIODARONE [Concomitant]
     Indication: DRUG USE FOR UNKNOWN INDICATION

REACTIONS (1)
  - PNEUMONIA [None]
